FAERS Safety Report 12232682 (Version 1)
Quarter: 2016Q2

REPORT INFORMATION
  Report Type: Spontaneous
  Country: BR (occurrence: BR)
  Receive Date: 20160401
  Receipt Date: 20160401
  Transmission Date: 20160815
  Serious: Yes (Hospitalization, Other)
  Sender: FDA-Public Use
  Company Number: BR-ASTRAZENECA-2016SE33773

PATIENT
  Age: 29 Year
  Sex: Male
  Weight: 105.1 kg

DRUGS (11)
  1. PLACEBO [Suspect]
     Active Substance: UNSPECIFIED INGREDIENT
     Indication: CARDIOVASCULAR DISORDER
     Dosage: EVERY TWO WEEKS
     Route: 058
  2. ROSUVASTATIN. [Suspect]
     Active Substance: ROSUVASTATIN
     Indication: DYSLIPIDAEMIA
     Route: 048
     Dates: start: 2014
  3. TICAGRELOR [Suspect]
     Active Substance: TICAGRELOR
     Indication: CARDIOVASCULAR EVENT PROPHYLAXIS
     Route: 048
     Dates: start: 2015
  4. EZETIMIBE. [Concomitant]
     Active Substance: EZETIMIBE
     Indication: DYSLIPIDAEMIA
     Dates: start: 2014
  5. BISOPROLOL [Concomitant]
     Active Substance: BISOPROLOL
     Indication: CORONARY ARTERY INSUFFICIENCY
     Dates: start: 2014
  6. PANTOPRAZOLE [Concomitant]
     Active Substance: PANTOPRAZOLE SODIUM
     Indication: CARDIOVASCULAR EVENT PROPHYLAXIS
     Dates: start: 2015
  7. ACETYLSALICYLIC ACID [Concomitant]
     Active Substance: ASPIRIN
     Indication: CARDIOVASCULAR EVENT PROPHYLAXIS
     Dates: start: 2014
  8. DILTIAZEM [Concomitant]
     Active Substance: DILTIAZEM
     Indication: CORONARY ARTERY INSUFFICIENCY
     Dates: start: 2014
  9. TRIMETAZIDINE [Concomitant]
     Active Substance: TRIMETAZIDINE
     Indication: CORONARY ARTERY INSUFFICIENCY
     Dates: start: 2015
  10. MONOCORDIL [Concomitant]
     Active Substance: ISOSORBIDE MONONITRATE
     Indication: CORONARY ARTERY INSUFFICIENCY
     Dates: start: 2014
  11. OMEGA 3 [Concomitant]
     Active Substance: OMEGA-3 FATTY ACIDS
     Indication: CORONARY ARTERY INSUFFICIENCY
     Dates: start: 2015

REACTIONS (4)
  - Cerebrovascular accident [Not Recovered/Not Resolved]
  - Renal colic [Not Recovered/Not Resolved]
  - Myalgia [Unknown]
  - Angina unstable [Unknown]

NARRATIVE: CASE EVENT DATE: 2014
